FAERS Safety Report 16897335 (Version 1)
Quarter: 2019Q4

REPORT INFORMATION
  Report Type: Spontaneous
  Country: LB (occurrence: LB)
  Receive Date: 20191009
  Receipt Date: 20191009
  Transmission Date: 20200122
  Serious: Yes (Other)
  Sender: FDA-Public Use
  Company Number: LB-EX USA HOLDINGS-EXHL20192399

PATIENT
  Sex: Female

DRUGS (1)
  1. DIVA (DROSPIRENONE\ETHINYL ESTRADIOL) [Suspect]
     Active Substance: DROSPIRENONE\ETHINYL ESTRADIOL
     Indication: PRODUCT USED FOR UNKNOWN INDICATION
     Dosage: 0.03 MG/3 MG
     Route: 048
     Dates: start: 20190919, end: 20190922

REACTIONS (2)
  - Vomiting [Unknown]
  - Pancreatitis [Unknown]

NARRATIVE: CASE EVENT DATE: 201909
